FAERS Safety Report 23549766 (Version 1)
Quarter: 2024Q1

REPORT INFORMATION
  Report Type: Spontaneous
  Country: US (occurrence: None)
  Receive Date: 20240220
  Receipt Date: 20240220
  Transmission Date: 20240410
  Serious: Yes (Disabling, Other)
  Sender: FDA-Public Use
  Company Number: None

PATIENT
  Sex: Female

DRUGS (1)
  1. METRONIDAZOLE [Suspect]
     Active Substance: METRONIDAZOLE
     Indication: Bacterial vaginosis
     Dosage: OTHER QUANTITY : 1 SUPPOSITORY(IES);?FREQUENCY : AT BEDTIME;?
     Route: 067

REACTIONS (14)
  - Confusional state [None]
  - Depression [None]
  - Paranoia [None]
  - Anxiety [None]
  - Tachycardia [None]
  - Vomiting [None]
  - Photophobia [None]
  - Hyperacusis [None]
  - Dizziness [None]
  - Headache [None]
  - Neuropathy peripheral [None]
  - Muscular weakness [None]
  - Toxicity to various agents [None]
  - Therapy cessation [None]

NARRATIVE: CASE EVENT DATE: 20240218
